FAERS Safety Report 9423850 (Version 1)
Quarter: 2013Q3

REPORT INFORMATION
  Report Type: Spontaneous
  Country: GB (occurrence: GB)
  Receive Date: 20130729
  Receipt Date: 20130729
  Transmission Date: 20140515
  Serious: Yes (Hospitalization, Other)
  Sender: FDA-Public Use
  Company Number: GB-AMGEN-GBRSP2013052528

PATIENT
  Age: 64 Year
  Sex: Female
  Weight: 59 kg

DRUGS (5)
  1. ENBREL [Suspect]
     Indication: RHEUMATOID ARTHRITIS
     Dosage: 50 MG, WEEKLY
     Route: 058
     Dates: start: 20041209, end: 20130103
  2. ALENDRONIC ACID [Concomitant]
     Dosage: UNK
  3. DICLOFENAC [Concomitant]
     Dosage: 75MG DOSE TWICE A DAY WHEN REQUIRED
  4. OMEPRAZOLE [Concomitant]
     Dosage: 20 MG, 1X/DAY
  5. TRAMADOL HYDROCHLORIDE [Concomitant]
     Dosage: UNK

REACTIONS (6)
  - Abdominal pain [Unknown]
  - Frequent bowel movements [Unknown]
  - Intestinal ulcer [Unknown]
  - Large intestine perforation [Unknown]
  - Crohn^s disease [Recovered/Resolved with Sequelae]
  - Inflammatory bowel disease [Unknown]
